FAERS Safety Report 24668949 (Version 1)
Quarter: 2024Q4

REPORT INFORMATION
  Report Type: Report from Study
  Country: FR (occurrence: None)
  Receive Date: 20241127
  Receipt Date: 20241127
  Transmission Date: 20250114
  Serious: Yes (Death, Life-Threatening, Other)
  Sender: ADIENNE PHARMA & BIOTECH
  Company Number: FR-ADIENNEP-2024AD000906

PATIENT
  Sex: Male

DRUGS (3)
  1. THIOTEPA [Suspect]
     Active Substance: THIOTEPA
     Indication: Autologous haematopoietic stem cell transplant
     Dosage: 250 MG/M2/DAY (D) AT D-9, D-8, D-7
  2. CYCLOPHOSPHAMIDE [Suspect]
     Active Substance: CYCLOPHOSPHAMIDE
     Indication: Autologous haematopoietic stem cell transplant
  3. BUSULFAN [Suspect]
     Active Substance: BUSULFAN
     Indication: Autologous haematopoietic stem cell transplant

REACTIONS (4)
  - Acute respiratory distress syndrome [Fatal]
  - Pneumonitis [Fatal]
  - Neutropenia [Unknown]
  - Thrombocytopenia [Unknown]
